FAERS Safety Report 4323776-0 (Version None)
Quarter: 2004Q1

REPORT INFORMATION
  Report Type: 
  Country: None (occurrence: None)
  Receive Date: 20040325
  Receipt Date: 20040325
  Transmission Date: 20041129
  Serious: Yes (Hospitalization)
  Sender: FDA-Public Use
  Company Number: None

PATIENT
  Age: 66 Year
  Sex: Female
  Weight: 54.8852 kg

DRUGS (7)
  1. GEMCITABINE [Suspect]
     Indication: PANCREATIC CARCINOMA METASTATIC
     Dosage: 750 MG/M2 IV
     Route: 042
     Dates: start: 20040211, end: 20040310
  2. CAPECITABINE [Suspect]
     Dosage: 750 MG/M2 PO
     Route: 048
     Dates: start: 20040211, end: 20040310
  3. ZOFRAN [Concomitant]
  4. ATIVAN [Concomitant]
  5. COMPAZINE [Concomitant]
  6. VITAMIN B6 [Concomitant]
  7. IMODIUM [Concomitant]

REACTIONS (2)
  - ABDOMINAL PAIN [None]
  - CONSTIPATION [None]
